FAERS Safety Report 8362374-9 (Version None)
Quarter: 2012Q2

REPORT INFORMATION
  Report Type: 
  Country: None (occurrence: None)
  Receive Date: 20120516
  Receipt Date: 20120507
  Transmission Date: 20120825
  Serious: No
  Sender: FDA-Public Use
  Company Number: US-BIOGENIDEC-2010BI020800

PATIENT
  Sex: Male

DRUGS (1)
  1. TYSABRI [Suspect]
     Indication: MULTIPLE SCLEROSIS
     Route: 042
     Dates: start: 20100609

REACTIONS (8)
  - BALANCE DISORDER [None]
  - COORDINATION ABNORMAL [None]
  - SPEECH DISORDER [None]
  - COGNITIVE DISORDER [None]
  - FEELING DRUNK [None]
  - GAIT DISTURBANCE [None]
  - VISUAL IMPAIRMENT [None]
  - DRUG INEFFECTIVE [None]
